FAERS Safety Report 4442556-9 (Version None)
Quarter: 2004Q3

REPORT INFORMATION
  Report Type: 
  Country: None (occurrence: None)
  Receive Date: 20040907
  Receipt Date: 20040823
  Transmission Date: 20050211
  Serious: Yes (Hospitalization)
  Sender: FDA-Public Use
  Company Number: US-MERCK-0408USA01842

PATIENT
  Age: 76 Year
  Sex: Male
  Weight: 130 kg

DRUGS (5)
  1. MAXZIDE [Concomitant]
     Route: 065
  2. LISINOPRIL [Concomitant]
     Route: 065
  3. XENICAL [Concomitant]
     Route: 065
  4. VIOXX [Suspect]
     Indication: OSTEOARTHRITIS
     Route: 048
     Dates: start: 20030730, end: 20040818
  5. CALAN [Concomitant]
     Route: 065

REACTIONS (1)
  - CHEST PAIN [None]
